FAERS Safety Report 8398322-5 (Version None)
Quarter: 2012Q2

REPORT INFORMATION
  Report Type: 
  Country: None (occurrence: None)
  Receive Date: 20120524
  Receipt Date: 20120521
  Transmission Date: 20120825
  Serious: Yes (Hospitalization, Other)
  Sender: FDA-Public Use
  Company Number: GER/UKI/12/0023731

PATIENT
  Age: 55 Year
  Sex: Female
  Weight: 146 kg

DRUGS (6)
  1. BENDROFLUMETHIAZIDE (BENDROFLUMETHIAZIDE) [Concomitant]
  2. METFFORMIN HYDROCHLORIDE [Concomitant]
  3. FLUOXETINE [Suspect]
     Indication: DEPRESSION
     Dosage: 20 MG, ORAL
     Route: 048
     Dates: end: 20120301
  4. EFFEXOR [Suspect]
     Indication: DEPRESSION
     Dosage: 225 MG, ORAL
     Route: 048
     Dates: start: 20120109
  5. IBUPROFEN [Concomitant]
  6. IRBESARTAN (IRBESARTAN) [Concomitant]

REACTIONS (2)
  - ENDOMETRIAL HYPERPLASIA [None]
  - MENORRHAGIA [None]
